FAERS Safety Report 22093771 (Version 1)
Quarter: 2023Q1

REPORT INFORMATION
  Report Type: Spontaneous
  Country: CZ (occurrence: CZ)
  Receive Date: 20230314
  Receipt Date: 20230314
  Transmission Date: 20230417
  Serious: Yes (Other)
  Sender: FDA-Public Use
  Company Number: CZ-JAZZ PHARMACEUTICALS-2023-CZ-005421

PATIENT
  Age: 51 Year
  Sex: Male

DRUGS (11)
  1. ASPARAGINASE [Suspect]
     Active Substance: ASPARAGINASE
     Indication: Chronic myeloid leukaemia
     Dosage: 9000IE
  2. METHOTREXATE [Suspect]
     Active Substance: METHOTREXATE
     Indication: Chronic myeloid leukaemia
     Dosage: UNK
  3. CYCLOPHOSPHAMIDE [Suspect]
     Active Substance: CYCLOPHOSPHAMIDE
     Indication: Chronic myeloid leukaemia
     Dosage: 360 MILLIGRAM, QD
  4. RITUXIMAB [Suspect]
     Active Substance: RITUXIMAB
     Indication: Chronic myeloid leukaemia
     Dosage: 100 MG DAY 1
  5. RITUXIMAB [Suspect]
     Active Substance: RITUXIMAB
     Dosage: 200 MG DAY 2
  6. RITUXIMAB [Suspect]
     Active Substance: RITUXIMAB
     Dosage: 400 MG DAY 3
  7. DAUNORUBICIN HYDROCHLORIDE [Suspect]
     Active Substance: DAUNORUBICIN HYDROCHLORIDE
     Indication: Chronic myeloid leukaemia
     Dosage: 80 MILLIGRAM, QD
  8. IMATINIB [Suspect]
     Active Substance: IMATINIB
     Indication: Chronic myeloid leukaemia
     Dosage: 400 MILLIGRAM
  9. VINCRISTINE [Suspect]
     Active Substance: VINCRISTINE
     Indication: Chronic myeloid leukaemia
     Dosage: 2 MILLIGRAM, QD
  10. CYTARABINE [Suspect]
     Active Substance: CYTARABINE
     Indication: Chronic myeloid leukaemia
     Dosage: UNK
  11. DEXAMETHASONE [Suspect]
     Active Substance: DEXAMETHASONE
     Indication: Chronic myeloid leukaemia
     Dosage: UNK

REACTIONS (7)
  - Liver disorder [Unknown]
  - Ileus [Unknown]
  - Cerebral toxoplasmosis [Unknown]
  - Pneumonia fungal [Unknown]
  - Mucosal inflammation [Unknown]
  - Weight decreased [Unknown]
  - Pancreatitis acute [Unknown]
